FAERS Safety Report 5110952-2 (Version None)
Quarter: 2006Q3

REPORT INFORMATION
  Report Type: 
  Country: None (occurrence: None)
  Receive Date: 20060731
  Receipt Date: 20060624
  Transmission Date: 20061208
  Serious: No
  Sender: FDA-Public Use
  Company Number: 2006PV016339

PATIENT
  Age: 63 Year
  Sex: Female
  Weight: 87.0906 kg

DRUGS (4)
  1. BYETTA [Suspect]
     Indication: DIABETES MELLITUS NON-INSULIN-DEPENDENT
     Dosage: SEE IMAGE
     Route: 058
     Dates: start: 20060422, end: 20060521
  2. BYETTA [Suspect]
     Indication: DIABETES MELLITUS NON-INSULIN-DEPENDENT
     Dosage: SEE IMAGE
     Route: 058
     Dates: start: 20060522, end: 20060623
  3. GLUCOPHAGE [Concomitant]
  4. GLYBURIDE [Concomitant]

REACTIONS (5)
  - ACCIDENTAL NEEDLE STICK [None]
  - BLOOD GLUCOSE DECREASED [None]
  - BLOOD GLUCOSE INCREASED [None]
  - TREMOR [None]
  - VISUAL ACUITY REDUCED [None]
